FAERS Safety Report 5123332-0 (Version None)
Quarter: 2006Q4

REPORT INFORMATION
  Report Type: 
  Country: None (occurrence: None)
  Receive Date: 20061005
  Receipt Date: 20060929
  Transmission Date: 20070319
  Serious: Yes (Hospitalization)
  Sender: FDA-Public Use
  Company Number: 2006-04791

PATIENT
  Age: 35 Year
  Sex: Female

DRUGS (2)
  1. TELSTAR DEPOT                 (WITH CLIP'N JECT) [Suspect]
     Indication: OVARIAN FAILURE
     Dosage: SINGLE
     Dates: start: 20060720, end: 20060720
  2. CHEMOTHERAPY [Concomitant]

REACTIONS (5)
  - CELLULITIS [None]
  - HERPES SIMPLEX [None]
  - NEUTROPENIA [None]
  - PROCEDURAL COMPLICATION [None]
  - PYREXIA [None]
